FAERS Safety Report 4312146-7 (Version None)
Quarter: 2004Q1

REPORT INFORMATION
  Report Type: 
  Country: None (occurrence: None)
  Receive Date: 20040303
  Receipt Date: 19990510
  Transmission Date: 20041129
  Serious: Yes (Other)
  Sender: FDA-Public Use
  Company Number: US-JNJFOC-20031104533

PATIENT
  Age: 48 Year
  Sex: Female
  Weight: 99.3377 kg

DRUGS (15)
  1. REMICADE [Suspect]
     Indication: CROHN'S DISEASE
     Dosage: 10 MG/KG INTRAVENOUS
     Route: 042
     Dates: start: 19950725
  2. REMICADE [Suspect]
     Indication: CROHN'S DISEASE
     Dosage: 10 MG/KG INTRAVENOUS
     Route: 042
     Dates: start: 19950912
  3. REMICADE [Suspect]
     Indication: CROHN'S DISEASE
     Dosage: 10 MG/KG INTRAVENOUS
     Route: 042
     Dates: start: 19951205
  4. REMICADE [Suspect]
     Indication: CROHN'S DISEASE
     Dosage: 10 MG/KG INTRAVENOUS
     Route: 042
     Dates: start: 19960130
  5. REMICADE [Suspect]
     Indication: CROHN'S DISEASE
     Dosage: 10 MG/KG INTRAVENOUS
     Route: 042
     Dates: start: 19960326
  6. REMICADE [Suspect]
     Indication: CROHN'S DISEASE
     Dosage: 10 MG/KG INTRAVENOUS
     Route: 042
     Dates: start: 19960523
  7. REMICADE [Suspect]
  8. PRINIVIL [Concomitant]
  9. ASACOL [Concomitant]
  10. MERCAPTOPURINE [Concomitant]
  11. PROZAC [Concomitant]
  12. ADVIL [Concomitant]
  13. ROLAIDS (DIHYDROXYYALUMINUM SODIUM CARBONATE) [Concomitant]
  14. ALEVE [Concomitant]
  15. ATIVAN [Concomitant]

REACTIONS (1)
  - SKIN CANCER [None]
